FAERS Safety Report 8480871-2 (Version None)
Quarter: 2012Q3

REPORT INFORMATION
  Report Type: 
  Country: None (occurrence: None)
  Receive Date: 20120702
  Receipt Date: 20120618
  Transmission Date: 20120928
  Serious: Yes (Hospitalization)
  Sender: FDA-Public Use
  Company Number: NL-TEVA-343949ISR

PATIENT
  Age: 25 Year
  Sex: Male

DRUGS (3)
  1. CLOZAPINE [Suspect]
     Indication: SCHIZOPHRENIA
     Dosage: 400MG (ON THE BASIS OF BLOOD LEVELS)
     Route: 065
  2. PROPRANOLOL [Suspect]
     Indication: SINUS TACHYCARDIA
     Dosage: UP TO 60 MG/DAY
     Route: 065
  3. FLUVOXAMINE MALEATE [Concomitant]
     Route: 065

REACTIONS (3)
  - SINUS TACHYCARDIA [None]
  - PSORIASIS [None]
  - METABOLIC SYNDROME [None]
